FAERS Safety Report 8100776-6 (Version None)
Quarter: 2012Q1

REPORT INFORMATION
  Report Type: 
  Country: None (occurrence: None)
  Receive Date: 20120129
  Receipt Date: 20111019
  Transmission Date: 20120608
  Serious: No
  Sender: FDA-Public Use
  Company Number: US-ABBOTT-11P-163-0864374-00

PATIENT
  Age: 59 Year
  Sex: Male

DRUGS (5)
  1. LOSARTAN/HTZ [Concomitant]
     Indication: HYPERTENSION
     Dosage: 50/12.5 MG
  2. PRILOSEC OTC [Concomitant]
     Indication: PRODUCT USED FOR UNKNOWN INDICATION
  3. HUMIRA [Suspect]
     Indication: CROHN'S DISEASE
     Dosage: LOADING DOSE
     Dates: start: 20110930
  4. ENTOCORT EC [Concomitant]
     Indication: CROHN'S DISEASE
  5. SIMVASTATIN [Concomitant]
     Indication: PRODUCT USED FOR UNKNOWN INDICATION

REACTIONS (4)
  - INFLAMMATION [None]
  - UPPER RESPIRATORY TRACT INFECTION [None]
  - UNEVALUABLE EVENT [None]
  - OROPHARYNGEAL PAIN [None]
